FAERS Safety Report 5490995-X (Version None)
Quarter: 2007Q4

REPORT INFORMATION
  Report Type: 
  Country: None (occurrence: None)
  Receive Date: 20071019
  Receipt Date: 20071009
  Transmission Date: 20080405
  Serious: Yes (Other)
  Sender: FDA-Public Use
  Company Number: US-PFIZER INC-2007061835

PATIENT
  Sex: Female
  Weight: 68 kg

DRUGS (2)
  1. CHANTIX [Suspect]
     Indication: SMOKING CESSATION THERAPY
  2. COZAAR [Concomitant]
     Indication: HYPERTENSION

REACTIONS (7)
  - FALL [None]
  - HEAD INJURY [None]
  - HYPOKINESIA [None]
  - SLEEP DISORDER [None]
  - VERTIGO [None]
  - VERTIGO POSITIONAL [None]
  - WEIGHT INCREASED [None]
